FAERS Safety Report 6375704-4 (Version None)
Quarter: 2009Q3

REPORT INFORMATION
  Report Type: 
  Country: None (occurrence: None)
  Receive Date: 20090922
  Receipt Date: 20090922
  Transmission Date: 20100115
  Serious: Yes (Disabling, Other)
  Sender: FDA-Public Use
  Company Number: None

PATIENT
  Age: 56 Year
  Sex: Male
  Weight: 81.1939 kg

DRUGS (2)
  1. SPIRONOLACTONE [Suspect]
     Indication: HYPERTENSION
     Dates: start: 20090101, end: 20090917
  2. SPIRONOLACTONE [Suspect]
     Indication: JOINT SWELLING
     Dates: start: 20090101, end: 20090917

REACTIONS (9)
  - BACK PAIN [None]
  - BREAST PAIN [None]
  - CALCIUM DEFICIENCY [None]
  - DEHYDRATION [None]
  - GYNAECOMASTIA [None]
  - MAGNESIUM DEFICIENCY [None]
  - MUSCLE SPASMS [None]
  - MUSCULOSKELETAL PAIN [None]
  - UBIQUINONE DECREASED [None]
